FAERS Safety Report 17457225 (Version 1)
Quarter: 2020Q1

REPORT INFORMATION
  Report Type: Spontaneous
  Country: US (occurrence: US)
  Receive Date: 20200225
  Receipt Date: 20200225
  Transmission Date: 20200409
  Serious: Yes (Death, Other)
  Sender: FDA-Public Use
  Company Number: US-ABBVIE-20K-163-3288060-00

PATIENT
  Sex: Male

DRUGS (3)
  1. VENETOCLAX. [Suspect]
     Active Substance: VENETOCLAX
     Indication: HIGH-GRADE B-CELL LYMPHOMA
     Route: 048
     Dates: start: 201803
  2. IBRUTINIB [Suspect]
     Active Substance: IBRUTINIB
     Indication: CHRONIC LYMPHOCYTIC LEUKAEMIA
     Route: 065
     Dates: start: 201402
  3. PEMBROLIZUMAB. [Suspect]
     Active Substance: PEMBROLIZUMAB
     Indication: HIGH-GRADE B-CELL LYMPHOMA
     Route: 065

REACTIONS (3)
  - High-grade B-cell lymphoma [Fatal]
  - Drug ineffective [Unknown]
  - Lymphoma [Recovered/Resolved]

NARRATIVE: CASE EVENT DATE: 201402
